FAERS Safety Report 25705173 (Version 1)
Quarter: 2025Q3

REPORT INFORMATION
  Report Type: Report from Study
  Country: CO (occurrence: CO)
  Receive Date: 20250820
  Receipt Date: 20250820
  Transmission Date: 20251021
  Serious: Yes (Other)
  Sender: BAYER HEALTHCARE PHARMACEUTICALS INC.
  Company Number: CO-BAYER-2025A109688

PATIENT
  Age: 55 Year
  Sex: Male

DRUGS (1)
  1. ADEMPAS [Suspect]
     Active Substance: RIOCIGUAT
     Indication: Pulmonary hypertension
     Dates: start: 202508

REACTIONS (3)
  - Heart rate increased [None]
  - Peripheral swelling [None]
  - Therapy change [None]

NARRATIVE: CASE EVENT DATE: 20250801
